FAERS Safety Report 9346975 (Version 1)
Quarter: 2013Q2

REPORT INFORMATION
  Report Type: Spontaneous
  Country: DE (occurrence: DE)
  Receive Date: 20130613
  Receipt Date: 20130613
  Transmission Date: 20140414
  Serious: Yes (Congenital Anomaly)
  Sender: FDA-Public Use
  Company Number: DE-US-EMD SERONO, INC.-7215827

PATIENT
  Sex: Female
  Weight: 3 kg

DRUGS (1)
  1. REBIF [Suspect]
     Indication: MULTIPLE SCLEROSIS
     Route: 064

REACTIONS (2)
  - Anal atresia [Unknown]
  - Haemangioma congenital [Unknown]
